FAERS Safety Report 24537840 (Version 1)
Quarter: 2024Q4

REPORT INFORMATION
  Report Type: Report from Study
  Country: US (occurrence: US)
  Receive Date: 20241023
  Receipt Date: 20241023
  Transmission Date: 20250114
  Serious: Yes (Other)
  Sender: ROCHE
  Company Number: US-ROCHE-3473149

PATIENT
  Age: 80 Year
  Sex: Male

DRUGS (2)
  1. ACTEMRA ACTPEN [Suspect]
     Active Substance: TOCILIZUMAB
     Indication: Thrombocytopenia
     Dosage: INJECT 0.9ML (162MG TOTAL) SUBCUTANEOUSLY ONCE A WEEK
     Route: 058
  2. ACTEMRA ACTPEN [Suspect]
     Active Substance: TOCILIZUMAB
     Indication: Giant cell arteritis
     Dosage: INJECT 0.9ML (162MG TOTAL) SUBCUTANEOUSLY EVERY OTHER WEEK
     Route: 058

REACTIONS (4)
  - Headache [Unknown]
  - Hypoacusis [Unknown]
  - Parkinson^s disease [Unknown]
  - Amnesia [Unknown]
